FAERS Safety Report 23345656 (Version 1)
Quarter: 2023Q4

REPORT INFORMATION
  Report Type: Report from Study
  Country: US (occurrence: None)
  Receive Date: 20231228
  Receipt Date: 20231228
  Transmission Date: 20240110
  Serious: Yes (Hospitalization, Other)
  Sender: FDA-Public Use
  Company Number: 2023A290463

PATIENT

DRUGS (1)
  1. FARXIGA [Suspect]
     Active Substance: DAPAGLIFLOZIN PROPANEDIOL
     Route: 048

REACTIONS (8)
  - Blood glucose increased [Unknown]
  - Cerebrovascular accident [Unknown]
  - Aphasia [Unknown]
  - Gait inability [Unknown]
  - Dysarthria [Unknown]
  - Vision blurred [Unknown]
  - Coordination abnormal [Unknown]
  - Reduced facial expression [Unknown]
